FAERS Safety Report 15107309 (Version 2)
Quarter: 2018Q3

REPORT INFORMATION
  Report Type: Spontaneous
  Country: US (occurrence: US)
  Receive Date: 20180704
  Receipt Date: 20180813
  Transmission Date: 20181010
  Serious: Yes (Other)
  Sender: FDA-Public Use
  Company Number: US-009507513-1806USA012283

PATIENT
  Age: 61 Year
  Sex: Male

DRUGS (1)
  1. KEYTRUDA [Suspect]
     Active Substance: PEMBROLIZUMAB
     Indication: METASTATIC MALIGNANT MELANOMA
     Dosage: INFUSIONS VIA VEINS IN BOTH ANTECUBITAL FOSSAE
     Route: 041

REACTIONS (2)
  - Pneumonitis [Recovered/Resolved]
  - Sarcoidosis [Unknown]
